FAERS Safety Report 13327172 (Version 1)
Quarter: 2017Q1

REPORT INFORMATION
  Report Type: Spontaneous
  Country: US (occurrence: US)
  Receive Date: 20170313
  Receipt Date: 20170313
  Transmission Date: 20170428
  Serious: Yes (Hospitalization)
  Sender: FDA-Public Use
  Company Number: US-BRISTOL-MYERS SQUIBB COMPANY-BMS-2017-019005

PATIENT
  Sex: Female

DRUGS (1)
  1. OPDIVO [Suspect]
     Active Substance: NIVOLUMAB
     Indication: LUNG NEOPLASM MALIGNANT
     Dosage: 184 MG, Q2WK
     Route: 042
     Dates: start: 20160315

REACTIONS (4)
  - Malaise [Unknown]
  - Blood creatinine increased [Unknown]
  - Confusional state [Unknown]
  - Asthenia [Unknown]
